FAERS Safety Report 17230402 (Version 1)
Quarter: 2020Q1

REPORT INFORMATION
  Report Type: Report from Study
  Country: PK (occurrence: PK)
  Receive Date: 20200103
  Receipt Date: 20200103
  Transmission Date: 20200409
  Serious: Yes (Other)
  Sender: FDA-Public Use
  Company Number: PK-ROCHE-2510681

PATIENT
  Age: 57 Year
  Sex: Male

DRUGS (1)
  1. AVASTIN [Suspect]
     Active Substance: BEVACIZUMAB
     Indication: COLORECTAL CANCER
     Route: 042
     Dates: start: 20190704

REACTIONS (1)
  - Ascites [Unknown]

NARRATIVE: CASE EVENT DATE: 20191211
